FAERS Safety Report 7432811-2 (Version None)
Quarter: 2011Q2

REPORT INFORMATION
  Report Type: 
  Country: None (occurrence: None)
  Receive Date: 20110422
  Receipt Date: 20110418
  Transmission Date: 20111010
  Serious: Yes (Other)
  Sender: FDA-Public Use
  Company Number: US-PERRIGO-11US002945

PATIENT
  Sex: Male
  Weight: 136.5 kg

DRUGS (6)
  1. LISINOPRIL [Concomitant]
     Indication: HYPERTENSION
     Dosage: UNK
     Route: 065
  2. TENORETIC [Concomitant]
     Indication: HYPERTENSION
     Dosage: UNK
     Route: 065
  3. NITETIME FREE CHRY 6HR LIQ 041 [Suspect]
     Indication: UPPER-AIRWAY COUGH SYNDROME
     Dosage: 30 ML, SINGLE
     Route: 048
     Dates: start: 20110404, end: 20110404
  4. NITETIME FREE CHRY 6HR LIQ 041 [Suspect]
     Dosage: UNKNOWN, PRN
     Route: 048
  5. CARVEDILOL [Concomitant]
     Indication: HYPERTENSION
     Dosage: UNK
     Route: 065
  6. ASPIRIN [Concomitant]
     Indication: PROPHYLAXIS
     Dosage: UNK
     Route: 065

REACTIONS (1)
  - HALLUCINATION [None]
